FAERS Safety Report 6284872-4 (Version None)
Quarter: 2009Q3

REPORT INFORMATION
  Report Type: 
  Country: None (occurrence: None)
  Receive Date: 20090727
  Receipt Date: 20090716
  Transmission Date: 20100115
  Serious: Yes (Disabling)
  Sender: FDA-Public Use
  Company Number: B0580808A

PATIENT
  Sex: Female

DRUGS (8)
  1. ARRANON [Suspect]
     Indication: T-CELL TYPE ACUTE LEUKAEMIA
     Dosage: 2100MG PER DAY
     Route: 042
     Dates: start: 20090605, end: 20090609
  2. MEROPEN [Concomitant]
     Indication: PYREXIA
     Route: 042
     Dates: start: 20090527, end: 20090706
  3. TEICOPLANIN [Concomitant]
     Indication: PYREXIA
     Route: 042
     Dates: start: 20090527, end: 20090706
  4. ERYTHROCIN LACTOBIONATE [Concomitant]
     Indication: PYREXIA
     Route: 042
     Dates: start: 20090604, end: 20090706
  5. AMIKACIN SULFATE [Concomitant]
     Indication: PYREXIA
     Route: 042
     Dates: start: 20090604, end: 20090706
  6. SOL-MELCORT [Concomitant]
     Indication: PYREXIA
     Route: 042
     Dates: start: 20090604, end: 20090607
  7. CLINDAMYCIN [Concomitant]
     Indication: PYREXIA
     Route: 042
     Dates: start: 20090604, end: 20090706
  8. FENTANYL-100 [Concomitant]
     Route: 065
     Dates: start: 20090607

REACTIONS (3)
  - CEREBRAL INFARCTION [None]
  - CONVULSION [None]
  - NUCLEAR MAGNETIC RESONANCE IMAGING BRAIN ABNORMAL [None]
